FAERS Safety Report 9425032 (Version 1)
Quarter: 2013Q3

REPORT INFORMATION
  Report Type: Spontaneous
  Country: DE (occurrence: DE)
  Receive Date: 20130729
  Receipt Date: 20130729
  Transmission Date: 20140515
  Serious: Yes (Hospitalization)
  Sender: FDA-Public Use
  Company Number: DE-B.I. PHARMACEUTICALS,INC./RIDGEFIELD-2013-DE-01898DE

PATIENT
  Age: 83 Year
  Sex: Female
  Weight: 81 kg

DRUGS (6)
  1. PRADAXA [Suspect]
     Indication: ATRIAL FIBRILLATION
     Dosage: 220 MG
     Route: 048
     Dates: start: 20111210, end: 20130505
  2. ASS [Suspect]
     Indication: CORONARY ARTERY DISEASE
     Dosage: 100 MG
     Route: 048
  3. RAMIPRIL [Concomitant]
     Indication: HYPERTENSION
     Dosage: 5 MG
     Route: 048
  4. METOPROLOL SUCCINAT 95 [Concomitant]
     Indication: HYPERTENSION
     Dosage: 95 NR
     Route: 048
  5. TORASEMID [Concomitant]
     Dosage: 10 MG
     Route: 048
  6. ALDACTONE [Concomitant]
     Dosage: 25 MG
     Route: 048

REACTIONS (2)
  - Anaemia [Not Recovered/Not Resolved]
  - Renal failure [Not Recovered/Not Resolved]
